FAERS Safety Report 19786657 (Version 1)
Quarter: 2021Q3

REPORT INFORMATION
  Report Type: Spontaneous
  Country: FR (occurrence: FR)
  Receive Date: 20210903
  Receipt Date: 20210903
  Transmission Date: 20211014
  Serious: Yes (Hospitalization)
  Sender: FDA-Public Use
  Company Number: FR-MYLANLABS-2021M1020684

PATIENT
  Age: 64 Year
  Sex: Female
  Weight: 90 kg

DRUGS (10)
  1. NEFOPAM MEDISOL [Concomitant]
     Active Substance: NEFOPAM HYDROCHLORIDE
     Dosage: UNK
  2. VESICARE [Concomitant]
     Active Substance: SOLIFENACIN SUCCINATE
     Dosage: UNK
  3. ZOLPIDEM [Concomitant]
     Active Substance: ZOLPIDEM TARTRATE
     Dosage: UNK
  4. PANTOPRAZOLE [Concomitant]
     Active Substance: PANTOPRAZOLE
     Dosage: UNK
  5. ACICLOVIR MYLAN [Suspect]
     Active Substance: ACYCLOVIR
     Indication: HERPES ZOSTER
     Dosage: 2400 MILLIGRAM, QD
     Route: 042
     Dates: start: 20201211, end: 20201213
  6. CALCIUM [Concomitant]
     Active Substance: CALCIUM
     Dosage: UNK
  7. ZYMAD [Concomitant]
     Active Substance: CHOLECALCIFEROL
     Indication: RHEUMATOID ARTHRITIS
     Dosage: UNK
  8. ACIDE FOLIQUE [Concomitant]
     Active Substance: FOLIC ACID
     Dosage: UNK
  9. HYDROXYZINE                        /00058402/ [Concomitant]
     Active Substance: HYDROXYZINE HYDROCHLORIDE
     Dosage: UNK
  10. DOLIPRANE [Concomitant]
     Active Substance: ACETAMINOPHEN
     Dosage: UNK

REACTIONS (2)
  - Acute kidney injury [Recovered/Resolved]
  - Renal tubular necrosis [Recovered/Resolved]

NARRATIVE: CASE EVENT DATE: 20201213
